FAERS Safety Report 8833246 (Version 2)
Quarter: 2013Q1

REPORT INFORMATION
  Report Type: Spontaneous
  Country: US (occurrence: US)
  Receive Date: 20121010
  Receipt Date: 20130128
  Transmission Date: 20140127
  Serious: Yes (Disabling, Other)
  Sender: FDA-Public Use
  Company Number: PHEH2012US017789

PATIENT
  Sex: Female

DRUGS (10)
  1. SANDOSTATIN LAR DEPOT [Suspect]
     Dosage: 30 MG, UNK
     Route: 042
  2. NEXIUM [Concomitant]
  3. XIFAXAN [Concomitant]
  4. FOLIC ACID [Concomitant]
  5. ZOFRAN [Concomitant]
  6. MIRTAZAPINE [Concomitant]
  7. NEURONTIN [Concomitant]
  8. AMITRIPTYLINE [Concomitant]
  9. TEGRETOL [Concomitant]
  10. INDERAL [Concomitant]

REACTIONS (5)
  - Crohn^s disease [Unknown]
  - Pollakiuria [Unknown]
  - Asthenia [Unknown]
  - Diarrhoea [Recovering/Resolving]
  - Drug ineffective [Unknown]
